FAERS Safety Report 4905520-9 (Version None)
Quarter: 2006Q1

REPORT INFORMATION
  Report Type: 
  Country: None (occurrence: None)
  Receive Date: 20060208
  Receipt Date: 20060120
  Transmission Date: 20060701
  Serious: Yes (Death, Other)
  Sender: FDA-Public Use
  Company Number: PHBS2006JP01332

PATIENT
  Age: 80 Year
  Sex: Male

DRUGS (8)
  1. TEGRETOL [Suspect]
     Indication: LACUNAR INFARCTION
     Dosage: 400 MG/DAY
     Route: 048
     Dates: start: 20060106
  2. RADICUT [Concomitant]
     Route: 065
  3. PLETAL [Suspect]
     Route: 065
     Dates: start: 20060106, end: 20060101
  4. TIENAM [Concomitant]
     Route: 065
  5. DIFLUCAN [Concomitant]
     Route: 065
     Dates: start: 20060106
  6. CEFMETAZON [Concomitant]
     Dates: end: 20060116
  7. ZANTAC [Suspect]
     Route: 065
     Dates: start: 20060106, end: 20060101
  8. VICCILLIN [Suspect]
     Route: 065
     Dates: start: 20060106

REACTIONS (3)
  - DEATH [None]
  - PLATELET COUNT DECREASED [None]
  - THROMBOCYTOPENIA [None]
